FAERS Safety Report 9700068 (Version 1)
Quarter: 2013Q4

REPORT INFORMATION
  Report Type: Spontaneous
  Country: JP (occurrence: JP)
  Receive Date: 20131121
  Receipt Date: 20131121
  Transmission Date: 20140711
  Serious: Yes (Life-Threatening)
  Sender: FDA-Public Use
  Company Number: JP-009507513-1311JPN007466

PATIENT
  Age: 65 Year
  Sex: Male
  Weight: 74 kg

DRUGS (3)
  1. NU-LOTAN TABLETS 25MG [Suspect]
     Indication: HYPERTENSION
     Dosage: 25 MG, QD
     Route: 048
     Dates: start: 20130904, end: 20130904
  2. JANUVIA TABLETS 25MG [Concomitant]
     Dosage: DAILY DOSE UNKNOWN
     Route: 048
  3. VOGLIBOSE [Concomitant]
     Dosage: UNK, FORMULATION: POR
     Route: 048

REACTIONS (1)
  - Anaphylactic shock [Recovering/Resolving]
